FAERS Safety Report 8423033-7 (Version None)
Quarter: 2012Q2

REPORT INFORMATION
  Report Type: 
  Country: None (occurrence: None)
  Receive Date: 20120608
  Receipt Date: 20120606
  Transmission Date: 20120825
  Serious: Yes (Death, Life-Threatening, Disabling, Other)
  Sender: FDA-Public Use
  Company Number: PHHY2012JP026039

PATIENT
  Sex: Female
  Weight: 54 kg

DRUGS (46)
  1. AZACTAM [Concomitant]
     Route: 042
  2. NEUTROGIN [Concomitant]
     Dosage: UNK UKN, UNK
     Route: 041
  3. SOLU-CORTEF [Concomitant]
     Dosage: UNK UKN, UNK
  4. POTASSIUM [Concomitant]
     Dosage: UNK UKN, UNK
     Route: 041
  5. HIRUDOID [Concomitant]
     Dosage: UNK UKN, UNK
     Route: 065
  6. LIDOMEX [Concomitant]
     Dosage: UNK UKN, UNK
     Route: 065
  7. PROGRAF [Concomitant]
     Dosage: UNK UKN, UNK
     Route: 041
  8. DOPAMINE HCL [Concomitant]
     Dosage: UNK UKN, UNK
     Route: 041
  9. FULMETA [Concomitant]
     Dosage: UNK UKN, UNK
     Route: 065
  10. ACETAMINOPHEN [Concomitant]
     Dosage: UNK UKN, UNK
     Route: 051
  11. FLUCONAZOLE [Concomitant]
     Route: 048
  12. MEROPENEM [Concomitant]
     Route: 041
  13. METHYLPREDNISOLONE SODIUM SUCCINATE [Concomitant]
     Dosage: UNK UKN, UNK
     Route: 041
  14. LEVOFLOXACIN [Concomitant]
     Route: 048
  15. NEUTROGIN [Concomitant]
     Route: 058
  16. SODIUM BICARBONATE [Concomitant]
     Route: 041
  17. AMINO ACIDS [Concomitant]
     Indication: RENAL FAILURE
     Dosage: UNK UKN, UNK
     Route: 041
  18. ACETAMINOPHEN [Concomitant]
     Dosage: UNK UKN, UNK
     Route: 048
  19. OMEPRAZOLE [Concomitant]
     Route: 048
  20. PROGRAF [Concomitant]
     Indication: PROPHYLAXIS AGAINST GRAFT VERSUS HOST DISEASE
     Dosage: UNK UKN, UNK
     Route: 042
     Dates: start: 20120323, end: 20120411
  21. FLUDARABINE PHOSPHATE [Concomitant]
     Dosage: UNK UKN, UNK
     Route: 065
     Dates: start: 20120308
  22. ALKERAN [Concomitant]
     Dosage: UNK UKN, UNK
     Route: 065
     Dates: start: 20120308
  23. FUROSEMIDE [Concomitant]
     Route: 041
  24. DORIPENEM MONOHYDRATE [Concomitant]
     Dosage: UNK UKN, UNK
     Route: 041
  25. M.V.I.-12 [Concomitant]
     Dosage: UNK UKN, UNK
     Route: 041
  26. LACTEC [Concomitant]
     Dosage: UNK UKN, UNK
     Route: 041
  27. CELECOXIB [Concomitant]
     Dosage: UNK UKN, UNK
     Route: 048
  28. ARTIFICIAL TEARS                   = [Concomitant]
     Dosage: UNK UKN, UNK
  29. SANDIMMUNE [Suspect]
     Indication: PROPHYLAXIS AGAINST GRAFT VERSUS HOST DISEASE
     Dosage: BID
     Route: 042
     Dates: start: 20120312, end: 20120321
  30. MUCOSTA [Concomitant]
     Route: 048
  31. ACYCLOVIR [Concomitant]
     Route: 048
  32. ATARAX [Concomitant]
     Route: 041
  33. ALLOID [Concomitant]
     Dosage: UNK UKN, UNK
     Route: 048
  34. XYLOCAINE [Concomitant]
     Dosage: UNK UKN, UNK
     Route: 065
  35. SODIUM BICARBONATE [Concomitant]
     Dosage: UNK UKN, UNK
     Route: 042
  36. AZACTAM                                 /SCH/ [Concomitant]
     Dosage: UNK UKN, UNK
     Route: 041
  37. DOBUTAMINE HCL [Concomitant]
     Route: 041
  38. CLOSTRIDIUM BUTYRICUM [Concomitant]
     Route: 048
  39. METHOTREXATE [Concomitant]
     Dosage: UNK UKN, UNK
     Route: 041
  40. FUROSEMIDE [Concomitant]
     Dosage: UNK UKN, UNK
     Route: 042
  41. HEPARIN SODIUM [Concomitant]
     Dosage: UNK UKN, UNK
     Route: 041
  42. MIYA-BM [Concomitant]
     Dosage: UNK UKN, UNK
     Route: 048
  43. HUMULIN R [Concomitant]
     Dosage: UNK UKN, UNK
     Route: 041
  44. PROMACTA [Concomitant]
     Dosage: UNK UKN, UNK
     Route: 048
  45. EPINASTINE HYDROCHLORIDE [Concomitant]
     Dosage: UNK UKN, UNK
     Route: 048
  46. OXINORM [Concomitant]
     Dosage: UNK UKN, UNK
     Route: 048

REACTIONS (15)
  - BLOOD CREATINE PHOSPHOKINASE INCREASED [None]
  - CARDIAC FAILURE [None]
  - BLOOD LACTATE DEHYDROGENASE INCREASED [None]
  - MUSCULAR WEAKNESS [None]
  - BLOOD UREA INCREASED [None]
  - FEBRILE NEUTROPENIA [None]
  - ACUTE RESPIRATORY DISTRESS SYNDROME [None]
  - PAIN [None]
  - OXYGEN SATURATION DECREASED [None]
  - RHABDOMYOLYSIS [None]
  - TOXIC SKIN ERUPTION [None]
  - PRURITUS [None]
  - ENGRAFT FAILURE [None]
  - ASPARTATE AMINOTRANSFERASE INCREASED [None]
  - WEIGHT INCREASED [None]
